FAERS Safety Report 9314360 (Version 1)
Quarter: 2013Q2

REPORT INFORMATION
  Report Type: Spontaneous
  Country: US (occurrence: US)
  Receive Date: 20130529
  Receipt Date: 20130529
  Transmission Date: 20140414
  Serious: No
  Sender: FDA-Public Use
  Company Number: US-BAYER-2013-065815

PATIENT
  Age: 69 Year
  Sex: Male
  Weight: 72.56 kg

DRUGS (2)
  1. ALEVE CAPLET [Suspect]
     Indication: ARTHRITIS
     Dosage: 1 DF, TID
     Route: 048
     Dates: start: 201305
  2. EXCEDRIN [CAFFEINE,PARACETAMOL] [Concomitant]

REACTIONS (1)
  - Drug ineffective [None]
